FAERS Safety Report 8673509 (Version 2)
Quarter: 2012Q4

REPORT INFORMATION
  Report Type: 
  Country: US (occurrence: US)
  Receive Date: 20120719
  Receipt Date: 20121019
  Transmission Date: 20130627
  Serious: Yes (Death, Hospitalization)
  Sender: FDA-Public Use
  Company Number: US-BRISTOL-MYERS SQUIBB COMPANY-16515116

PATIENT
  Age: 80 Year
  Sex: Male

DRUGS (1)
  1. YERVOY [Suspect]
     Indication: METASTATIC MALIGNANT MELANOMA
     Dates: start: 2012

REACTIONS (2)
  - Malignant neoplasm progression [Fatal]
  - Autoimmune hepatitis [Unknown]
